FAERS Safety Report 7235968-1 (Version None)
Quarter: 2011Q1

REPORT INFORMATION
  Report Type: 
  Country: None (occurrence: None)
  Receive Date: 20110111
  Receipt Date: 20101229
  Transmission Date: 20110831
  Serious: Yes (Hospitalization, Disabling)
  Sender: FDA-Public Use
  Company Number: 2008-179019-NL

PATIENT
  Age: 45 Year
  Sex: Female
  Weight: 72.6 kg

DRUGS (2)
  1. NUVARING [Suspect]
     Indication: CONTRACEPTION
     Dosage: QM; VAG
     Route: 067
     Dates: start: 20030601, end: 20070905
  2. COUMADIN [Suspect]
     Indication: PULMONARY EMBOLISM
     Dates: start: 20070905

REACTIONS (16)
  - PULMONARY EMBOLISM [None]
  - DILATATION VENTRICULAR [None]
  - BRONCHIAL SECRETION RETENTION [None]
  - PLEURAL EFFUSION [None]
  - OEDEMA PERIPHERAL [None]
  - JOINT RANGE OF MOTION DECREASED [None]
  - PULMONARY ARTERIAL HYPERTENSION [None]
  - RIGHT VENTRICULAR FAILURE [None]
  - URINARY TRACT INFECTION [None]
  - VENOUS PRESSURE JUGULAR INCREASED [None]
  - PULMONARY INFARCTION [None]
  - TRICUSPID VALVE INCOMPETENCE [None]
  - BUNION OPERATION [None]
  - FEELING HOT [None]
  - ATELECTASIS [None]
  - DEEP VEIN THROMBOSIS [None]
